FAERS Safety Report 19162937 (Version 1)
Quarter: 2021Q2

REPORT INFORMATION
  Report Type: Spontaneous
  Country: US (occurrence: US)
  Receive Date: 20210421
  Receipt Date: 20210421
  Transmission Date: 20210717
  Serious: Yes (Hospitalization, Other)
  Sender: FDA-Public Use
  Company Number: US-PACIRA-2021000272

PATIENT

DRUGS (16)
  1. TRAMADOL. [Concomitant]
     Active Substance: TRAMADOL
     Dosage: 50 MG FOR MODERATE PAIN
     Route: 065
  2. GABAPENTIN. [Concomitant]
     Active Substance: GABAPENTIN
     Dosage: 600 MG (300 MG FOR PATIENTS }65 YEARS OR WITH RENAL IMPAIRMENT), PRE?OP
     Route: 048
  3. LIDOCAINE. [Concomitant]
     Active Substance: LIDOCAINE
     Dosage: 2 MG/KG/HR (FOR PATIENTS { 65 YEARS).
     Route: 065
  4. TRAMADOL. [Concomitant]
     Active Substance: TRAMADOL
     Dosage: 100 MG FOR SEVERE PAIN AS NEEDED EVERY 6 HOURS
     Route: 065
  5. EXPAREL [Suspect]
     Active Substance: BUPIVACAINE
     Dosage: 1 ML/KG WEIGHT?BASED VOLUME OF LB MIXED WITH 0.5% BUPIVACAINE
     Route: 065
  6. BUPIVACAINE. [Suspect]
     Active Substance: BUPIVACAINE
     Dosage: 30 ML OR 150 MG MIXED WITH LB
     Route: 065
  7. ACETAMINOPHEN. [Concomitant]
     Active Substance: ACETAMINOPHEN
     Dosage: 1000 MG Q8H POST?OP
     Route: 048
  8. METOCLOPRAMIDE. [Concomitant]
     Active Substance: METOCLOPRAMIDE
     Dosage: 10 MG
     Route: 065
  9. GABAPENTIN. [Concomitant]
     Active Substance: GABAPENTIN
     Dosage: 600 MG QHS POST?OP
     Route: 048
  10. KETOROLAC [Concomitant]
     Active Substance: KETOROLAC TROMETHAMINE
     Dosage: 30 MG, (15 MG FOR PATIENTS ? 65 YEARS, WEIGHT { 50 KG, OR RENAL IMPAIRMENT)
     Route: 065
  11. CELECOXIB. [Concomitant]
     Active Substance: CELECOXIB
     Dosage: 200 MG BID POST?OP
     Route: 048
  12. MAGNESIUM [Concomitant]
     Active Substance: MAGNESIUM
     Dosage: 30 MG/KG BOLUS, 6 MG/KG/HR INFUSION (FOR PATIENTS { 65 YEARS)
     Route: 040
  13. CELECOXIB. [Concomitant]
     Active Substance: CELECOXIB
     Dosage: 200 MG PRE?OP
     Route: 048
  14. SCOPOLAMINE [Concomitant]
     Active Substance: SCOPOLAMINE
     Dosage: 1.5 MG (FOR PATIENTS {65 YEARS)
     Route: 062
  15. DEXAMETHASONE. [Concomitant]
     Active Substance: DEXAMETHASONE
     Dosage: 4 MG
     Route: 042
  16. ACETAMINOPHEN. [Concomitant]
     Active Substance: ACETAMINOPHEN
     Dosage: 1000 MG PRE?OP
     Route: 048

REACTIONS (6)
  - Hospitalisation [Unknown]
  - Post procedural complication [Unknown]
  - Procedural vomiting [Unknown]
  - Postoperative wound infection [Unknown]
  - Complication associated with device [Unknown]
  - Medical diet [Unknown]
